FAERS Safety Report 6243965-8 (Version None)
Quarter: 2009Q2

REPORT INFORMATION
  Report Type: 
  Country: None (occurrence: None)
  Receive Date: 20090623
  Receipt Date: 20090609
  Transmission Date: 20091009
  Serious: Yes (Hospitalization, Other)
  Sender: FDA-Public Use
  Company Number: 2009-104451-NL

PATIENT
  Age: 47 Year
  Sex: Female

DRUGS (1)
  1. NUVARING [Suspect]
     Indication: MENORRHAGIA
     Dates: start: 20090116, end: 20090301

REACTIONS (3)
  - ABDOMINAL PAIN LOWER [None]
  - PULMONARY EMBOLISM [None]
  - THROMBOSIS [None]
